FAERS Safety Report 14655131 (Version 2)
Quarter: 2018Q1

REPORT INFORMATION
  Report Type: Spontaneous
  Country: TR (occurrence: TR)
  Receive Date: 20180319
  Receipt Date: 20180328
  Transmission Date: 20180509
  Serious: Yes (Other)
  Sender: FDA-Public Use
  Company Number: TR-BAYER-2018-027565

PATIENT
  Age: 22 Year
  Sex: Female
  Weight: 99 kg

DRUGS (4)
  1. BETAFERON [Suspect]
     Active Substance: INTERFERON BETA-1B
     Indication: MULTIPLE SCLEROSIS
     Dosage: 1 DF, QOD
     Dates: start: 201304
  2. BETACONNECT [Suspect]
     Active Substance: DEVICE
     Dosage: UNK
  3. CORTISONE [Suspect]
     Active Substance: CORTISONE\HYDROCORTISONE
     Indication: PARAESTHESIA
  4. CORTISONE [Suspect]
     Active Substance: CORTISONE\HYDROCORTISONE
     Indication: HEMIANAESTHESIA
     Dosage: 1 DF, QD
     Route: 041

REACTIONS (11)
  - Incorrect dose administered by device [Recovered/Resolved]
  - Abdominal pain [Recovered/Resolved]
  - Decreased appetite [None]
  - Paraesthesia [Recovered/Resolved]
  - Nausea [Recovered/Resolved]
  - Hemianaesthesia [Recovered/Resolved]
  - Weight decreased [None]
  - Chills [Recovered/Resolved]
  - Device failure [Recovered/Resolved]
  - Alopecia [Recovered/Resolved]
  - Hypoaesthesia [Recovered/Resolved]

NARRATIVE: CASE EVENT DATE: 201801
